FAERS Safety Report 15863705 (Version 3)
Quarter: 2021Q3

REPORT INFORMATION
  Report Type: Spontaneous
  Country: US (occurrence: US)
  Receive Date: 20190124
  Receipt Date: 20210714
  Transmission Date: 20211014
  Serious: Yes (Other)
  Sender: FDA-Public Use
  Company Number: US-ASTRAZENECA-2018SF33399

PATIENT
  Sex: Female
  Weight: 68 kg

DRUGS (26)
  1. NIFEDIPINE. [Concomitant]
     Active Substance: NIFEDIPINE
  2. TRAMADOL. [Concomitant]
     Active Substance: TRAMADOL
  3. METOCLOPRAMIDE. [Concomitant]
     Active Substance: METOCLOPRAMIDE
  4. NEXIUM [Suspect]
     Active Substance: ESOMEPRAZOLE MAGNESIUM
     Indication: GASTROOESOPHAGEAL REFLUX DISEASE
     Route: 048
     Dates: start: 2009, end: 2013
  5. PRILOSEC OTC [Suspect]
     Active Substance: OMEPRAZOLE MAGNESIUM
     Route: 048
     Dates: start: 2009, end: 2013
  6. NITROGLYCERIN. [Concomitant]
     Active Substance: NITROGLYCERIN
  7. SERTRALINE [Concomitant]
     Active Substance: SERTRALINE HYDROCHLORIDE
  8. ALPHAGAN P [Concomitant]
     Active Substance: BRIMONIDINE TARTRATE
  9. LANTUS [Concomitant]
     Active Substance: INSULIN GLARGINE
  10. NEXIUM [Suspect]
     Active Substance: ESOMEPRAZOLE MAGNESIUM
     Indication: GASTROOESOPHAGEAL REFLUX DISEASE
     Route: 048
     Dates: start: 2006
  11. TRIAMTERENE AND HYDROCHLOROTHIAZIDE [Concomitant]
     Active Substance: HYDROCHLOROTHIAZIDE\TRIAMTERENE
  12. LISINOPRIL. [Concomitant]
     Active Substance: LISINOPRIL
  13. ADVAIR HFA [Concomitant]
     Active Substance: FLUTICASONE PROPIONATE\SALMETEROL XINAFOATE
  14. CHERATUSSIN [Concomitant]
     Active Substance: AMMONIUM CHLORIDE\DEXTROMETHORPHAN\SODIUM CITRATE
  15. LORATADINE. [Concomitant]
     Active Substance: LORATADINE
  16. THEOPHYLLINE [Concomitant]
     Active Substance: THEOPHYLLINE ANHYDROUS
  17. CEFCLOR [Concomitant]
  18. CEPHALEXIN. [Concomitant]
     Active Substance: CEPHALEXIN
  19. CARVEDILOL. [Concomitant]
     Active Substance: CARVEDILOL
  20. VALTREX [Concomitant]
     Active Substance: VALACYCLOVIR HYDROCHLORIDE
  21. PROCHLORPERAZINE. [Concomitant]
     Active Substance: PROCHLORPERAZINE
  22. ACTOS [Concomitant]
     Active Substance: PIOGLITAZONE HYDROCHLORIDE
  23. NOVOLIN NOS [Concomitant]
     Active Substance: INSULIN HUMAN
  24. MAPAP [Concomitant]
     Active Substance: ACETAMINOPHEN
  25. ETODOLAC. [Concomitant]
     Active Substance: ETODOLAC
  26. CARTIA [Concomitant]

REACTIONS (4)
  - Nephropathy [Unknown]
  - Chronic kidney disease [Not Recovered/Not Resolved]
  - Renal failure [Unknown]
  - Acute kidney injury [Unknown]
